FAERS Safety Report 4545155-3 (Version None)
Quarter: 2005Q1

REPORT INFORMATION
  Report Type: 
  Country: None (occurrence: None)
  Receive Date: 20050103
  Receipt Date: 20041227
  Transmission Date: 20050727
  Serious: Yes (Death, Hospitalization)
  Sender: FDA-Public Use
  Company Number: 200410469BFR

PATIENT
  Age: 71 Year
  Sex: Female
  Weight: 67 kg

DRUGS (6)
  1. MOXIFLOXACIN HYDROCHLORIDE [Suspect]
     Indication: BRONCHITIS
     Dosage: 400 MG, TOTAL DAILY, ORAL
     Route: 048
     Dates: start: 20040315, end: 20040316
  2. MONO-TILDEM [Concomitant]
  3. PRAZOSIN HCL [Concomitant]
  4. ALDACTONE [Concomitant]
  5. NITROGLYCERIN [Concomitant]
  6. KARDEGIC [Concomitant]

REACTIONS (3)
  - CARDIAC DISORDER [None]
  - PULMONARY EMBOLISM [None]
  - SHOCK [None]
